FAERS Safety Report 5736732-2 (Version None)
Quarter: 2008Q2

REPORT INFORMATION
  Report Type: 
  Country: None (occurrence: None)
  Receive Date: 20080513
  Receipt Date: 20080501
  Transmission Date: 20081010
  Serious: Yes (Hospitalization, Other)
  Sender: FDA-Public Use
  Company Number: FR-PFIZER INC-2005136912

PATIENT
  Age: 37 Year
  Sex: Female

DRUGS (11)
  1. IBUPROFEN TABLETS [Suspect]
     Indication: PHARYNGITIS
  2. IBUPROFEN TABLETS [Suspect]
     Indication: PYREXIA
  3. IBUPROFEN TABLETS [Suspect]
     Indication: CONJUNCTIVITIS
  4. AMOXICILLIN [Suspect]
     Indication: PHARYNGITIS
  5. AMOXICILLIN [Suspect]
     Indication: PYREXIA
  6. AMOXICILLIN [Suspect]
     Indication: CONJUNCTIVITIS
  7. ATARAX [Suspect]
     Indication: ANXIETY
     Route: 048
     Dates: start: 20050812, end: 20050812
  8. EUPHYTOSE [Suspect]
     Route: 048
  9. TYPHOID VACCINE [Concomitant]
     Route: 048
  10. HEPATITIS B VACCINE [Concomitant]
  11. NSAID'S [Concomitant]
     Route: 048

REACTIONS (5)
  - HEPATITIS CHOLESTATIC [None]
  - KERATITIS [None]
  - PHARYNGITIS [None]
  - PYREXIA [None]
  - STEVENS-JOHNSON SYNDROME [None]
